FAERS Safety Report 22251062 (Version 1)
Quarter: 2023Q2

REPORT INFORMATION
  Report Type: Spontaneous
  Country: CN (occurrence: CN)
  Receive Date: 20230425
  Receipt Date: 20230425
  Transmission Date: 20230721
  Serious: Yes (Hospitalization, Other)
  Sender: FDA-Public Use
  Company Number: CN-002147023-NVSC2023CN091314

PATIENT
  Age: 16 Year
  Sex: Female
  Weight: 47 kg

DRUGS (3)
  1. OXCARBAZEPINE [Suspect]
     Active Substance: OXCARBAZEPINE
     Indication: Affective disorder
     Dosage: 0.3 G, BID
     Route: 048
     Dates: start: 20230328, end: 20230403
  2. OXAZEPAM [Suspect]
     Active Substance: OXAZEPAM
     Indication: Affective disorder
     Dosage: UNK
     Route: 065
  3. QUETIAPINE [Suspect]
     Active Substance: QUETIAPINE
     Indication: Affective disorder
     Dosage: UNK
     Route: 065

REACTIONS (9)
  - White blood cell count decreased [Recovered/Resolved]
  - Hepatic function abnormal [Recovered/Resolved]
  - Rash [Recovered/Resolved]
  - Pyrexia [Recovered/Resolved]
  - Neutrophil count decreased [Recovered/Resolved]
  - Tonsillitis [Unknown]
  - Pharyngeal erythema [Unknown]
  - Asthenia [Unknown]
  - Product use in unapproved indication [Unknown]

NARRATIVE: CASE EVENT DATE: 20230401
